FAERS Safety Report 4506553-7 (Version None)
Quarter: 2004Q4

REPORT INFORMATION
  Report Type: 
  Country: None (occurrence: None)
  Receive Date: 20041122
  Receipt Date: 20041111
  Transmission Date: 20050328
  Serious: Yes (Other)
  Sender: FDA-Public Use
  Company Number: 200421318GDDC

PATIENT
  Age: 74 Year
  Sex: Male
  Weight: 80 kg

DRUGS (8)
  1. RIFAMPICIN [Suspect]
     Indication: ARTHRITIS INFECTIVE
     Route: 048
     Dates: start: 20040922, end: 20041029
  2. SALBUTAMOL [Concomitant]
     Dosage: DOSE: UNK
  3. IPRATROPIUM BROMIDE [Concomitant]
     Dosage: DOSE: UNK
  4. FUROSEMIDE [Concomitant]
     Dosage: DOSE: UNK
  5. INSULIN [Concomitant]
     Dosage: DOSE: UNK
  6. FLUCLOXACILLIN [Concomitant]
     Dosage: DOSE: UNK
  7. ACETAMINOPHEN [Concomitant]
     Dosage: DOSE: UNK
  8. DANAPAROID [Concomitant]
     Dosage: DOSE: UNK

REACTIONS (1)
  - RED MAN SYNDROME [None]
